FAERS Safety Report 7585663-4 (Version None)
Quarter: 2011Q2

REPORT INFORMATION
  Report Type: 
  Country: None (occurrence: None)
  Receive Date: 20110629
  Receipt Date: 20110629
  Transmission Date: 20111010
  Serious: Yes (Other)
  Sender: FDA-Public Use
  Company Number: None

PATIENT
  Sex: Female
  Weight: 56.246 kg

DRUGS (1)
  1. LOVASTATIN [Suspect]
     Indication: BLOOD CHOLESTEROL INCREASED
     Dosage: 20 MG Q. PO 2 YRS AGO BEGAN 10 MG , NO PROBLEM
     Route: 048

REACTIONS (5)
  - MUSCULAR WEAKNESS [None]
  - BURNING SENSATION [None]
  - FATIGUE [None]
  - CONSTIPATION [None]
  - PAIN [None]
